FAERS Safety Report 7741993-4 (Version None)
Quarter: 2011Q3

REPORT INFORMATION
  Report Type: 
  Country: None (occurrence: None)
  Receive Date: 20110912
  Receipt Date: 20110831
  Transmission Date: 20111222
  Serious: Yes (Other)
  Sender: FDA-Public Use
  Company Number: US-JNJFOC-20110700939

PATIENT
  Sex: Female
  Weight: 52.16 kg

DRUGS (3)
  1. METHOTREXATE [Concomitant]
     Indication: ARTHRITIS
  2. SIMPONI [Suspect]
     Indication: RHEUMATOID ARTHRITIS
     Route: 058
     Dates: start: 20090101
  3. SIMPONI [Suspect]
     Indication: PSORIATIC ARTHROPATHY
     Route: 058
     Dates: start: 20090101

REACTIONS (2)
  - GINGIVAL OPERATION [None]
  - ARTHRITIS [None]
